FAERS Safety Report 10021462 (Version 1)
Quarter: 2014Q1

REPORT INFORMATION
  Report Type: Spontaneous
  Country: US (occurrence: None)
  Receive Date: 20140318
  Receipt Date: 20140318
  Transmission Date: 20141002
  Serious: Yes (Other)
  Sender: FDA-Public Use
  Company Number: None

PATIENT
  Age: 62 Year
  Sex: Male
  Weight: 92.99 kg

DRUGS (1)
  1. LAMOTRIGINE 25 MG ZYDUS [Suspect]
     Indication: AFFECTIVE DISORDER
     Dosage: 1.5 TABLETS ?BID?ORAL
     Route: 048
     Dates: start: 20140209, end: 20140317

REACTIONS (7)
  - Anxiety [None]
  - Impatience [None]
  - Irritability [None]
  - Obsessive-compulsive disorder [None]
  - Drug effect decreased [None]
  - Product substitution issue [None]
  - Product quality issue [None]
